FAERS Safety Report 13550574 (Version 1)
Quarter: 2017Q2

REPORT INFORMATION
  Report Type: Spontaneous
  Country: US (occurrence: US)
  Receive Date: 20170516
  Receipt Date: 20170516
  Transmission Date: 20170830
  Serious: Yes (Hospitalization)
  Sender: FDA-Public Use
  Company Number: None

PATIENT
  Age: 81 Year
  Sex: Female
  Weight: 73.7 kg

DRUGS (11)
  1. BIMATOPROST. [Concomitant]
     Active Substance: BIMATOPROST
  2. MVI [Concomitant]
     Active Substance: VITAMINS
  3. ADVAIR HFA [Concomitant]
     Active Substance: FLUTICASONE PROPIONATE\SALMETEROL XINAFOATE
  4. LANTUS [Suspect]
     Active Substance: INSULIN GLARGINE
     Indication: DIABETES MELLITUS
     Dosage: CHRONIC WITH RECENT CHANGE,15UNITS NIGHTLY SQ
     Route: 058
  5. ATENOLOL. [Concomitant]
     Active Substance: ATENOLOL
  6. ZESTRIL [Concomitant]
     Active Substance: LISINOPRIL
  7. LASIX [Concomitant]
     Active Substance: FUROSEMIDE
  8. VITAMIN C [Concomitant]
     Active Substance: ASCORBIC ACID
  9. ECOTRIN [Concomitant]
     Active Substance: ASPIRIN
  10. PROZAC [Concomitant]
     Active Substance: FLUOXETINE HYDROCHLORIDE
  11. SYNTHROID [Concomitant]
     Active Substance: LEVOTHYROXINE SODIUM

REACTIONS (3)
  - Encephalopathy [None]
  - Hypoglycaemia [None]
  - Urinary tract infection [None]

NARRATIVE: CASE EVENT DATE: 20170110
